FAERS Safety Report 5845522-1 (Version None)
Quarter: 2008Q3

REPORT INFORMATION
  Report Type: 
  Country: None (occurrence: None)
  Receive Date: 20080731
  Receipt Date: 20080627
  Transmission Date: 20090109
  Serious: No
  Sender: FDA-Public Use
  Company Number: US200805001422

PATIENT
  Age: 66 Year
  Sex: Female
  Weight: 108.8 kg

DRUGS (11)
  1. BYETTA [Suspect]
     Indication: TYPE 2 DIABETES MELLITUS
     Dosage: SUBCUTANEOUS : 5 UG, 2/D, SUBCUTANEOUS
     Route: 058
     Dates: start: 20061101
  2. BYETTA [Suspect]
     Indication: TYPE 2 DIABETES MELLITUS
     Dosage: SUBCUTANEOUS : 5 UG, 2/D, SUBCUTANEOUS
     Route: 058
     Dates: start: 20071113
  3. GLYBURIDE [Concomitant]
  4. ACTOS /USA/ (PIOGLITAZONE HYDROCHLORIDE) [Concomitant]
  5. METOLAZONE [Concomitant]
  6. CELEBREX [Concomitant]
  7. ASPIRIN [Concomitant]
  8. VYTORIN [Concomitant]
  9. DITROPAN /00538901/ (OXYBUTYNIN) [Concomitant]
  10. ADVAIR DISKUS 100/50 [Concomitant]
  11. ATROVENT [Concomitant]

REACTIONS (4)
  - BLOOD GLUCOSE DECREASED [None]
  - LOWER LIMB FRACTURE [None]
  - PRESYNCOPE [None]
  - WEIGHT DECREASED [None]
